FAERS Safety Report 14425199 (Version 1)
Quarter: 2018Q1

REPORT INFORMATION
  Report Type: Spontaneous
  Country: US (occurrence: US)
  Receive Date: 20180123
  Receipt Date: 20180123
  Transmission Date: 20180509
  Serious: No
  Sender: FDA-Public Use
  Company Number: US-BELCHER PHARMACEUTICALS, LLC-2017US015050

PATIENT

DRUGS (3)
  1. EPINEPHRINE INJECTION USP [Suspect]
     Active Substance: EPINEPHRINE
     Indication: LOCAL ANAESTHESIA
     Dosage: UNK
     Route: 023
  2. LIDOCAINE. [Concomitant]
     Active Substance: LIDOCAINE
  3. SODIUM BICARBONATE. [Concomitant]
     Active Substance: SODIUM BICARBONATE

REACTIONS (2)
  - Off label use [Unknown]
  - Procedural haemorrhage [Recovered/Resolved]
